FAERS Safety Report 9776700 (Version 1)
Quarter: 2013Q4

REPORT INFORMATION
  Report Type: Spontaneous
  Country: US (occurrence: US)
  Receive Date: 20131220
  Receipt Date: 20131220
  Transmission Date: 20140711
  Serious: Yes (Death)
  Sender: FDA-Public Use
  Company Number: PHHY2013US146416

PATIENT
  Age: 14 Year
  Sex: Female

DRUGS (6)
  1. TERBINAFINE [Suspect]
     Indication: ZYGOMYCOSIS
  2. VORICONAZOLE [Suspect]
     Indication: ZYGOMYCOSIS
  3. AMPHOTERICIN B [Suspect]
     Indication: ZYGOMYCOSIS
  4. MICAFUNGIN [Suspect]
     Indication: ZYGOMYCOSIS
  5. POSACONAZOLE [Suspect]
     Indication: ZYGOMYCOSIS
  6. DEFEROXAMINE [Concomitant]
     Indication: HAEMOSIDEROSIS
     Route: 058

REACTIONS (2)
  - Pythium insidiosum infection [Fatal]
  - Drug ineffective [Unknown]
